FAERS Safety Report 9362134 (Version 2)
Quarter: 2013Q3

REPORT INFORMATION
  Report Type: Report from Study
  Country: US (occurrence: US)
  Receive Date: 20130621
  Receipt Date: 20130703
  Transmission Date: 20140515
  Serious: Yes (Hospitalization, Other)
  Sender: FDA-Public Use
  Company Number: US-US-EMD SERONO, INC.-7149853

PATIENT
  Age: 53 Year
  Sex: Female

DRUGS (2)
  1. REBIF [Suspect]
     Indication: MULTIPLE SCLEROSIS
     Route: 058
     Dates: start: 20080629
  2. GABAPENTIN [Concomitant]
     Indication: LIMB DISCOMFORT

REACTIONS (6)
  - Osteoarthritis [Recovering/Resolving]
  - Fall [Unknown]
  - Tendon rupture [Not Recovered/Not Resolved]
  - Arthropod bite [Not Recovered/Not Resolved]
  - Influenza like illness [Recovered/Resolved]
  - Inappropriate schedule of drug administration [Unknown]
